FAERS Safety Report 7253166-2 (Version None)
Quarter: 2011Q1

REPORT INFORMATION
  Report Type: 
  Country: None (occurrence: None)
  Receive Date: 20110129
  Receipt Date: 20100129
  Transmission Date: 20110831
  Serious: Yes (Hospitalization, Other)
  Sender: FDA-Public Use
  Company Number: US-ABBOTT-10P-163-0622932-00

PATIENT
  Sex: Male
  Weight: 79.45 kg

DRUGS (1)
  1. HUMIRA [Suspect]
     Indication: PSORIASIS
     Route: 058
     Dates: start: 20090325, end: 20090624

REACTIONS (10)
  - DEHYDRATION [None]
  - PAIN [None]
  - PYREXIA [None]
  - DYSPHAGIA [None]
  - PHARYNGITIS [None]
  - OROPHARYNGEAL PAIN [None]
  - NUCHAL RIGIDITY [None]
  - HEADACHE [None]
  - PHARYNGEAL OEDEMA [None]
  - PHARYNGEAL ABSCESS [None]
